FAERS Safety Report 5089037-X (Version None)
Quarter: 2006Q3

REPORT INFORMATION
  Report Type: 
  Country: None (occurrence: None)
  Receive Date: 20060825
  Receipt Date: 20060814
  Transmission Date: 20061208
  Serious: Yes (Hospitalization)
  Sender: FDA-Public Use
  Company Number: 2006SE04405

PATIENT
  Age: 23151 Day
  Sex: Female

DRUGS (15)
  1. CRESTOR [Suspect]
     Indication: HYPERCHOLESTEROLAEMIA
     Route: 048
     Dates: start: 20050101, end: 20060728
  2. LYRICA [Concomitant]
  3. ISMEXIN [Concomitant]
  4. FURESIS [Concomitant]
  5. METOPROLOL SUCCINATE [Concomitant]
  6. APURIN [Concomitant]
  7. DIFORMIN [Concomitant]
  8. PROTAPHANE [Concomitant]
  9. MIXTARD HUMAN 70/30 [Concomitant]
  10. ABALGIN [Concomitant]
  11. PARASETAMOL [Concomitant]
  12. TENOX [Concomitant]
  13. PERTRIPTYL [Concomitant]
  14. LOSEC MUPS [Concomitant]
  15. NITRO [Concomitant]

REACTIONS (8)
  - ASTHENIA [None]
  - BLOOD CREATINE PHOSPHOKINASE INCREASED [None]
  - DIABETIC NEPHROPATHY [None]
  - METABOLIC ACIDOSIS [None]
  - MYALGIA [None]
  - NEPHROSCLEROSIS [None]
  - RENAL FAILURE ACUTE [None]
  - RENOVASCULAR HYPERTENSION [None]
